FAERS Safety Report 9434908 (Version 2)
Quarter: 2013Q3

REPORT INFORMATION
  Report Type: Spontaneous
  Country: US (occurrence: US)
  Receive Date: 20130801
  Receipt Date: 20130805
  Transmission Date: 20140515
  Serious: Yes (Death)
  Sender: FDA-Public Use
  Company Number: CHPA2013US012037

PATIENT
  Age: 81 Year
  Sex: Male

DRUGS (1)
  1. VOLTAREN GEL [Suspect]
     Indication: DRY SKIN
     Dosage: UNK, 2-3 TIMES WEEKLY
     Route: 061

REACTIONS (3)
  - Dementia Alzheimer^s type [Fatal]
  - Drug administered at inappropriate site [Unknown]
  - Off label use [Unknown]
